FAERS Safety Report 6981359-8 (Version None)
Quarter: 2010Q3

REPORT INFORMATION
  Report Type: 
  Country: None (occurrence: None)
  Receive Date: 20100914
  Receipt Date: 20100831
  Transmission Date: 20110219
  Serious: Yes (Other)
  Sender: FDA-Public Use
  Company Number: TR-MYLANLABS-2010S1016008

PATIENT
  Age: 37 Year
  Sex: Male

DRUGS (3)
  1. VALACYCLOVIR [Suspect]
     Route: 065
  2. MYCOPHENOLIC ACID [Concomitant]
     Route: 065
  3. TACROLIMUS [Concomitant]
     Route: 065

REACTIONS (3)
  - ABDOMINAL DISCOMFORT [None]
  - FATIGUE [None]
  - NEUTROPENIA [None]
